FAERS Safety Report 6341166-6 (Version None)
Quarter: 2009Q3

REPORT INFORMATION
  Report Type: 
  Country: None (occurrence: None)
  Receive Date: 20090904
  Receipt Date: 20090324
  Transmission Date: 20100115
  Serious: No
  Sender: FDA-Public Use
  Company Number: A0772325A

PATIENT
  Age: 58 Year
  Sex: Female

DRUGS (16)
  1. ROPINIROLE [Suspect]
     Indication: PARKINSON'S DISEASE
     Dosage: 3MG UNKNOWN
     Route: 048
     Dates: start: 20080601, end: 20081201
  2. CALCIUM [Concomitant]
  3. IRON [Concomitant]
  4. ADVAIR HFA [Concomitant]
  5. ALBUTEROL [Concomitant]
  6. COMBGEN [Concomitant]
  7. OMEPRAZOLE [Concomitant]
  8. POTASSIUM CHLORIDE [Concomitant]
  9. MIACALCIN [Concomitant]
  10. TRIAMCINOLONE [Concomitant]
  11. DILAUDID [Concomitant]
  12. ENULOSE [Concomitant]
  13. HAWTHORN BERRY [Concomitant]
  14. SELEGILINE HCL [Concomitant]
  15. SINEMET [Concomitant]
  16. ATIVAN [Concomitant]

REACTIONS (2)
  - BLOOD PRESSURE ORTHOSTATIC [None]
  - INSOMNIA [None]
